FAERS Safety Report 16792926 (Version 9)
Quarter: 2020Q3

REPORT INFORMATION
  Report Type: Report from Study
  Country: GB (occurrence: GB)
  Receive Date: 20190910
  Receipt Date: 20200826
  Transmission Date: 20201102
  Serious: Yes (Congenital Anomaly, Other)
  Sender: FDA-Public Use
  Company Number: GB-AUROBINDO-AUR-APL-2019-057437

PATIENT
  Age: 4 Day
  Sex: Male
  Weight: 2.85 kg

DRUGS (12)
  1. COLECALCIFEROL [Suspect]
     Active Substance: CHOLECALCIFEROL
     Indication: PRODUCT USED FOR UNKNOWN INDICATION
     Dosage: UNK, 1 TRIMESTER
     Route: 064
  2. NIFEDIPINE. [Suspect]
     Active Substance: NIFEDIPINE
     Indication: HYPERTENSION
     Dosage: UNK,  (1 TRIMESTER)
     Route: 064
  3. ABACAVIR FILM COATED TABLETS [Suspect]
     Active Substance: ABACAVIR
     Dosage: UNK UNK, ONCE A DAY, MATERNAL DOSE: 400 QD (1ST TRIMESTER)
     Route: 064
  4. VITAMIN D [Suspect]
     Active Substance: VITAMIN D NOS
     Indication: PRODUCT USED FOR UNKNOWN INDICATION
     Dosage: UNK, (1 TRIMESTER)
     Route: 064
  5. ABACAVIR+LAMIVUDINE 600/300 MG FILM COATED TABLET [Suspect]
     Active Substance: ABACAVIR\LAMIVUDINE
     Indication: HIV INFECTION
     Dosage: 1 DOSAGE FORM, ONCE A DAY, 1 TRIMESTER
     Route: 064
  6. ABACAVIR FILM COATED TABLETS [Suspect]
     Active Substance: ABACAVIR
     Indication: HIV INFECTION
     Dosage: 1 DOSAGE FORM, ONCE A DAY
     Route: 064
  7. ABACAVIR+LAMIVUDINE 600/300 MG FILM COATED TABLET [Suspect]
     Active Substance: ABACAVIR\LAMIVUDINE
     Dosage: 1 DOSAGE FORM, TAB PER CAPS (1ST TRIMESTER)
     Route: 064
  8. ACETYLSALICYLIC ACID [Suspect]
     Active Substance: ASPIRIN
     Indication: HYPERTENSION
     Dosage: UNK,  (1 TRIMESTER)
     Route: 064
  9. ASPIRIN. [Suspect]
     Active Substance: ASPIRIN
     Indication: HYPERTENSION
     Dosage: UNK
     Route: 064
  10. LAMIVUDINE FILM?COATED TABLETS [Suspect]
     Active Substance: LAMIVUDINE
     Indication: HIV INFECTION
     Dosage: 1 DOSAGE FORM, ONCE A DAY/ COURSE 1
     Route: 064
  11. NEVIRAPINE TABLET [Suspect]
     Active Substance: NEVIRAPINE
     Indication: HIV INFECTION
     Dosage: 400 MILLIGRAM, ONCE A DAY
     Route: 064
  12. LABETALOL [Suspect]
     Active Substance: LABETALOL\LABETALOL HYDROCHLORIDE
     Indication: HYPERTENSION
     Dosage: UNK,  (1 TRIMESTER)
     Route: 064

REACTIONS (2)
  - Foetal exposure during pregnancy [Recovered/Resolved]
  - Polydactyly [Unknown]

NARRATIVE: CASE EVENT DATE: 20190816
